FAERS Safety Report 9169699 (Version 1)
Quarter: 2013Q1

REPORT INFORMATION
  Report Type: Spontaneous
  Country: US (occurrence: US)
  Receive Date: 20130318
  Receipt Date: 20130318
  Transmission Date: 20140127
  Serious: Yes (Other)
  Sender: FDA-Public Use
  Company Number: US-TEVA-392350USA

PATIENT
  Age: 32 Year
  Sex: Female
  Weight: 70.37 kg

DRUGS (4)
  1. PARAGARD 380A [Suspect]
     Indication: CONTRACEPTION
     Route: 015
     Dates: start: 20120814
  2. CENTRUM [Concomitant]
     Route: 048
  3. CRANBERRY [Concomitant]
     Indication: URINARY TRACT INFECTION
     Route: 048
     Dates: start: 201301
  4. NITROFURONTIN [Concomitant]
     Indication: URINARY TRACT INFECTION
     Route: 048
     Dates: start: 20130312

REACTIONS (2)
  - Urinary tract infection [Not Recovered/Not Resolved]
  - Abdominal distension [Not Recovered/Not Resolved]
